FAERS Safety Report 24383610 (Version 1)
Quarter: 2024Q4

REPORT INFORMATION
  Report Type: Spontaneous
  Country: US (occurrence: None)
  Receive Date: 20241001
  Receipt Date: 20241001
  Transmission Date: 20250115
  Serious: Yes (Hospitalization)
  Sender: Public
  Company Number: None

PATIENT
  Sex: Male
  Weight: 88.4 kg

DRUGS (8)
  1. CYCLOPHOSPHAMIDE [Suspect]
     Active Substance: CYCLOPHOSPHAMIDE
     Dates: start: 20240313, end: 20240915
  2. CYTARABINE [Concomitant]
     Active Substance: CYTARABINE
  3. DEXAMETHASONE [Concomitant]
     Active Substance: DEXAMETHASONE
  4. DOXORUBICIN HYDROCHLORIDE [Concomitant]
     Active Substance: DOXORUBICIN HYDROCHLORIDE
  5. MESNA [Concomitant]
     Active Substance: MESNA
  6. METHOTREXATE [Concomitant]
     Active Substance: METHOTREXATE
  7. Panatinib hydrochloride [Concomitant]
  8. VINCRISTINE SULFATE [Concomitant]
     Active Substance: VINCRISTINE SULFATE

REACTIONS (8)
  - Syncope [None]
  - Head injury [None]
  - Fall [None]
  - Seizure [None]
  - Confusional state [None]
  - Dysuria [None]
  - Pollakiuria [None]
  - Sinus tachycardia [None]

NARRATIVE: CASE EVENT DATE: 20240922
